FAERS Safety Report 17286689 (Version 2)
Quarter: 2020Q3

REPORT INFORMATION
  Report Type: Report from Study
  Country: KR (occurrence: KR)
  Receive Date: 20200119
  Receipt Date: 20200522
  Transmission Date: 20201105
  Serious: Yes (Hospitalization, Other)
  Sender: FDA-Public Use
  Company Number: KR-ALEXION PHARMACEUTICALS INC.-A201913612

PATIENT
  Age: 43 Year
  Sex: Female
  Weight: 67 kg

DRUGS (9)
  1. RAVULIZUMAB. [Suspect]
     Active Substance: RAVULIZUMAB
     Dosage: 3300 MG, UNK
     Route: 042
     Dates: start: 20200203
  2. RAVULIZUMAB. [Suspect]
     Active Substance: RAVULIZUMAB
     Indication: PAROXYSMAL NOCTURNAL HAEMOGLOBINURIA
     Dosage: 400 MG, UNK
     Route: 042
     Dates: start: 20151112
  3. RAVULIZUMAB. [Suspect]
     Active Substance: RAVULIZUMAB
     Dosage: 3300 MG, UNK
     Route: 042
     Dates: start: 20191007
  4. RAVULIZUMAB. [Suspect]
     Active Substance: RAVULIZUMAB
     Dosage: 3300 MG, UNK
     Route: 042
     Dates: start: 20191202
  5. TYLENOL ER [Concomitant]
     Active Substance: ACETAMINOPHEN
     Indication: HEADACHE
     Dosage: 650 MG, PRN
     Route: 048
     Dates: start: 20180910
  6. DERMATOP [Concomitant]
     Active Substance: PREDNICARBATE
     Indication: NASOPHARYNGITIS
     Dosage: 0.25 %, PRN
     Route: 061
     Dates: start: 20190617
  7. RAVULIZUMAB. [Suspect]
     Active Substance: RAVULIZUMAB
     Dosage: 3300 MG, UNK
     Route: 042
     Dates: start: 20190812
  8. ASPIRIN PROTECT [Concomitant]
     Active Substance: ASPIRIN
     Indication: PROPHYLAXIS
     Dosage: 100 MG, QD
     Route: 048
     Dates: start: 20110514
  9. MIRENA [Concomitant]
     Active Substance: LEVONORGESTREL
     Indication: PRODUCT USED FOR UNKNOWN INDICATION
     Dosage: UNK
     Route: 015

REACTIONS (1)
  - Tubo-ovarian abscess [Recovered/Resolved]

NARRATIVE: CASE EVENT DATE: 20190831
